FAERS Safety Report 8724307 (Version 2)
Quarter: 2012Q4

REPORT INFORMATION
  Report Type: 
  Country: US (occurrence: US)
  Receive Date: 20120815
  Receipt Date: 20121018
  Transmission Date: 20130627
  Serious: Yes (Disabling)
  Sender: FDA-Public Use
  Company Number: US-SANOFI-AVENTIS-2012SA058022

PATIENT
  Age: 68 Year
  Sex: Female
  Weight: 78.92 kg

DRUGS (3)
  1. LANTUS SOLOSTAR [Suspect]
     Indication: DIABETES MELLITUS
     Dosage: in am Dose:48 unit(s)
     Route: 058
  2. SOLOSTAR [Suspect]
     Indication: DIABETES MELLITUS
  3. OPTICLICK [Suspect]
     Indication: DIABETES MELLITUS
     Dates: start: 200610

REACTIONS (2)
  - Toe amputation [Not Recovered/Not Resolved]
  - Leg amputation [Unknown]
